FAERS Safety Report 21765190 (Version 1)
Quarter: 2022Q4

REPORT INFORMATION
  Report Type: Report from Study
  Country: BE (occurrence: BE)
  Receive Date: 20221222
  Receipt Date: 20221222
  Transmission Date: 20230113
  Serious: Yes (Hospitalization, Other)
  Sender: FDA-Public Use
  Company Number: BE-ABBVIE-4245619

PATIENT
  Sex: Female

DRUGS (8)
  1. CARBIDOPA\LEVODOPA [Suspect]
     Active Substance: CARBIDOPA\LEVODOPA
     Indication: Parkinson^s disease
     Dosage: MD 6.0 ML; CD 2.5 ML/HR DURING 16 HOURS; ED 1.0 ML
     Route: 050
     Dates: start: 20220919, end: 20221219
  2. CARBIDOPA\LEVODOPA [Suspect]
     Active Substance: CARBIDOPA\LEVODOPA
     Dosage: MD 6.0 ML; CD 2.5 ML/HR DURING 16 HOURS; ED 1.3 ML
     Route: 050
     Dates: start: 20220914, end: 20220919
  3. CARBIDOPA\LEVODOPA [Suspect]
     Active Substance: CARBIDOPA\LEVODOPA
     Route: 050
     Dates: start: 20160425
  4. CARBIDOPA\LEVODOPA [Suspect]
     Active Substance: CARBIDOPA\LEVODOPA
     Dosage: MD 6.0 ML; CD 2.7 ML/HR DURING 16 HOURS; ED 1.3 ML
     Route: 050
     Dates: start: 20221219
  5. AMANTADINE [Concomitant]
     Active Substance: AMANTADINE
     Indication: Parkinson^s disease
     Dosage: FORM STRENGTH: 100?ONCE IN THE MORNING
  6. PARLODEL [Concomitant]
     Active Substance: BROMOCRIPTINE MESYLATE
     Indication: Product used for unknown indication
     Dosage: FORM STRENGTH: 10MG
  7. BENSERAZIDE\LEVODOPA [Concomitant]
     Active Substance: BENSERAZIDE\LEVODOPA
     Indication: Product used for unknown indication
     Dosage: 3/4 CAPSULE?FORM STRENGTH: 250
  8. BENSERAZIDE\LEVODOPA [Concomitant]
     Active Substance: BENSERAZIDE\LEVODOPA
     Indication: Product used for unknown indication
     Dosage: 1/2 CAPSULE?FORM STRENGTH: 250

REACTIONS (5)
  - General physical health deterioration [Unknown]
  - SARS-CoV-2 test positive [Unknown]
  - Terminal state [Unknown]
  - Somnolence [Unknown]
  - Hyporesponsive to stimuli [Unknown]
